FAERS Safety Report 6474610-4 (Version None)
Quarter: 2009Q4

REPORT INFORMATION
  Report Type: 
  Country: None (occurrence: None)
  Receive Date: 20091204
  Receipt Date: 20090401
  Transmission Date: 20100525
  Serious: Yes (Hospitalization, Other)
  Sender: FDA-Public Use
  Company Number: US-ELI_LILLY_AND_COMPANY-US200902000004

PATIENT
  Sex: Male
  Weight: 106.58 kg

DRUGS (9)
  1. ALIMTA [Suspect]
     Indication: NON-SMALL CELL LUNG CANCER STAGE IV
     Dosage: 1190 MG, OTHER
     Route: 042
     Dates: start: 20090113, end: 20090113
  2. FOLIC ACID [Concomitant]
     Dosage: 1 MG, DAILY (1/D)
     Route: 048
  3. CORTICOSTEROIDS [Concomitant]
     Indication: PROPHYLAXIS
  4. SIMVASTATIN [Concomitant]
     Dosage: 40 MG, DAILY (1/D)
     Route: 048
  5. NEXIUM [Concomitant]
     Dosage: 40 MG, DAILY (1/D)
     Route: 048
  6. COUMADIN [Concomitant]
     Indication: ATRIAL FIBRILLATION
     Dosage: 3 MG, DAILY (1/D)
     Route: 048
  7. VICODIN [Concomitant]
     Dosage: 1 D/F, AS NEEDED
     Route: 048
  8. VICODIN [Concomitant]
     Dosage: 2 D/F, AS NEEDED
     Route: 048
  9. ALBUTEROL SULFATE AUTOHALER [Concomitant]
     Dosage: 1 D/F, DAILY (1/D)
     Route: 055

REACTIONS (9)
  - CARDIAC FAILURE CONGESTIVE [None]
  - CHEST PAIN [None]
  - DYSPNOEA [None]
  - HAEMANGIOMA OF LIVER [None]
  - HEPATIC CYST [None]
  - INTERNATIONAL NORMALISED RATIO INCREASED [None]
  - MALIGNANT NEOPLASM PROGRESSION [None]
  - PANCYTOPENIA [None]
  - RASH PRURITIC [None]
